FAERS Safety Report 10015584 (Version 3)
Quarter: 2014Q3

REPORT INFORMATION
  Report Type: Spontaneous
  Country: US (occurrence: US)
  Receive Date: 20140317
  Receipt Date: 20140814
  Transmission Date: 20150326
  Serious: Yes (Other)
  Sender: FDA-Public Use
  Company Number: US-009507513-1403USA005247

PATIENT
  Age: 23 Year
  Sex: Female

DRUGS (8)
  1. ISENTRESS [Suspect]
     Active Substance: RALTEGRAVIR POTASSIUM
     Indication: HIV INFECTION
     Dosage: 800 MG/DAY
     Route: 048
     Dates: start: 20130613
  2. NORVIR [Suspect]
     Active Substance: RITONAVIR
     Indication: HIV INFECTION
     Dosage: 100 MG/DAY
     Route: 048
     Dates: start: 20130627, end: 20130901
  3. RETROVIR [Suspect]
     Active Substance: ZIDOVUDINE
     Dosage: 1 MICROGRAM PER KILOGRAM, QH
     Route: 042
     Dates: start: 20131129, end: 20131129
  4. RETROVIR [Suspect]
     Active Substance: ZIDOVUDINE
     Indication: HIV INFECTION
     Dosage: TOTAL DAILY DOSE: 2 MG/KG/HR
     Route: 042
     Dates: start: 20131129, end: 20131129
  5. PREZISTA [Suspect]
     Active Substance: DARUNAVIR ETHANOLATE
     Dosage: 1200 MILLIGRAMS PER DAY
     Route: 048
     Dates: start: 20130901
  6. NORVIR [Suspect]
     Active Substance: RITONAVIR
     Dosage: 200 MG, DAY
     Route: 048
     Dates: start: 20130901
  7. PREZISTA [Suspect]
     Active Substance: DARUNAVIR ETHANOLATE
     Indication: HIV INFECTION
     Dosage: 800 MG/DAY
     Route: 048
     Dates: start: 20130627, end: 20130901
  8. TRUVADA [Suspect]
     Active Substance: EMTRICITABINE\TENOFOVIR DISOPROXIL FUMARATE
     Indication: HIV INFECTION
     Dosage: 1 DF, UNK
     Route: 048
     Dates: start: 20130613

REACTIONS (5)
  - Maternal exposure during pregnancy [Recovered/Resolved]
  - Cardiac tamponade [Unknown]
  - Sepsis [Unknown]
  - Pericardial excision [Unknown]
  - Infarction [Unknown]

NARRATIVE: CASE EVENT DATE: 2013
